FAERS Safety Report 12857459 (Version 2)
Quarter: 2016Q4

REPORT INFORMATION
  Report Type: Spontaneous
  Country: US (occurrence: US)
  Receive Date: 20161018
  Receipt Date: 20161111
  Transmission Date: 20170207
  Serious: Yes (Death, Hospitalization, Other)
  Sender: FDA-Public Use
  Company Number: US-PFIZER INC-2016482500

PATIENT
  Age: 57 Year
  Sex: Male
  Weight: 117.93 kg

DRUGS (1)
  1. VFEND [Suspect]
     Active Substance: VORICONAZOLE
     Dosage: UNK
     Dates: start: 20160314, end: 20160811

REACTIONS (14)
  - Pneumonia [Unknown]
  - Immune system disorder [Unknown]
  - Rash [Unknown]
  - Sepsis [Unknown]
  - Weight decreased [Unknown]
  - Conversion disorder [Unknown]
  - Leukaemia recurrent [Fatal]
  - Pyrexia [Unknown]
  - Acute myeloid leukaemia [Unknown]
  - Pain [Unknown]
  - Graft versus host disease [Unknown]
  - Infection [Unknown]
  - Blood blister [Recovered/Resolved]
  - Compartment syndrome [Recovered/Resolved]

NARRATIVE: CASE EVENT DATE: 201607
